FAERS Safety Report 4514185-X (Version None)
Quarter: 2004Q4

REPORT INFORMATION
  Report Type: 
  Country: None (occurrence: None)
  Receive Date: 20041124
  Receipt Date: 20041108
  Transmission Date: 20050328
  Serious: Yes (Hospitalization)
  Sender: FDA-Public Use
  Company Number: 8008015

PATIENT
  Age: 27 Year
  Sex: Male

DRUGS (3)
  1. KEPPRA [Suspect]
     Dosage: 1500 MG 2/D PO
     Route: 048
     Dates: start: 20030101
  2. ACETAZOLAMIDE [Suspect]
     Dosage: 125 MG THREE PO
     Route: 048
  3. CARBAMAZEPINE [Concomitant]

REACTIONS (2)
  - INSOMNIA [None]
  - PSYCHOTIC DISORDER [None]
